FAERS Safety Report 13855063 (Version 2)
Quarter: 2017Q3

REPORT INFORMATION
  Report Type: Spontaneous
  Country: US (occurrence: US)
  Receive Date: 20170810
  Receipt Date: 20170823
  Transmission Date: 20171127
  Serious: Yes (Other)
  Sender: FDA-Public Use
  Company Number: US-PFIZER INC-2017340677

PATIENT
  Age: 53 Year
  Sex: Female
  Weight: 68.4 kg

DRUGS (2)
  1. GABAPENTIN. [Suspect]
     Active Substance: GABAPENTIN
     Indication: PAIN
     Dosage: 300 MG, 4X/DAY
     Route: 048
  2. GABAPENTIN. [Suspect]
     Active Substance: GABAPENTIN
     Indication: SEIZURE
     Dosage: 300 MG, 3X/DAY
     Route: 048

REACTIONS (14)
  - Depression [Unknown]
  - Amnesia [Unknown]
  - Apnoea [Recovering/Resolving]
  - Arrhythmia [Unknown]
  - Respiration abnormal [Recovering/Resolving]
  - Dizziness [Unknown]
  - Heart rate decreased [Unknown]
  - Suicidal ideation [Recovered/Resolved]
  - Seizure [Recovered/Resolved]
  - Fall [Unknown]
  - Dysarthria [Unknown]
  - Dyspnoea [Recovering/Resolving]
  - Poisoning [Recovering/Resolving]
  - Vertigo [Unknown]
